FAERS Safety Report 10210418 (Version 1)
Quarter: 2014Q2

REPORT INFORMATION
  Report Type: Spontaneous
  Country: CH (occurrence: CH)
  Receive Date: 20140602
  Receipt Date: 20140602
  Transmission Date: 20141212
  Serious: Yes (Hospitalization)
  Sender: FDA-Public Use
  Company Number: CH-TEVA-483535ISR

PATIENT
  Age: 37 Year
  Sex: Male

DRUGS (5)
  1. KEFZOL [Suspect]
     Indication: ANTIBIOTIC PROPHYLAXIS
     Dosage: 2 GRAM DAILY; SINGLE DOSE, ADMINISTERED INTRAOPERATIVELY
     Route: 042
     Dates: start: 20140130, end: 20140130
  2. KEFZOL [Suspect]
     Dosage: 2 GRAM DAILY; SINGLE DOSE, ADMINISTERED INTRAOPERATIVELY
     Route: 042
     Dates: start: 20140213, end: 20140213
  3. NOVALGIN [Suspect]
     Indication: CALCULUS URINARY
     Dosage: 60 GTT DAILY;
     Route: 065
     Dates: start: 20140129, end: 20140131
  4. VOLTAREN [Concomitant]
     Dosage: 150 MILLIGRAM DAILY;
     Route: 065
     Dates: start: 20140131, end: 20140131
  5. PRADIF [Concomitant]
     Route: 065
     Dates: start: 20140129, end: 20140131

REACTIONS (3)
  - Agranulocytosis [Recovered/Resolved]
  - Agranulocytosis [Unknown]
  - Pyrexia [Unknown]
